FAERS Safety Report 20199760 (Version 1)
Quarter: 2021Q4

REPORT INFORMATION
  Report Type: Spontaneous
  Country: US (occurrence: US)
  Receive Date: 20211217
  Receipt Date: 20211217
  Transmission Date: 20220303
  Serious: No
  Sender: FDA-Public Use
  Company Number: US-NOVEN PHARMACEUTICALS, INC.-2021-NOV-US003523

PATIENT
  Sex: Female

DRUGS (1)
  1. ESTRADIOL [Suspect]
     Active Substance: ESTRADIOL
     Indication: Hot flush
     Dosage: 0.05 MG, UNKNOWN
     Route: 062

REACTIONS (4)
  - Rash [Recovered/Resolved]
  - Headache [Recovered/Resolved]
  - Application site rash [Recovered/Resolved]
  - Therapeutic product ineffective [Recovered/Resolved]
